FAERS Safety Report 9798517 (Version 1)
Quarter: 2014Q1

REPORT INFORMATION
  Report Type: Spontaneous
  Country: US (occurrence: US)
  Receive Date: 20140106
  Receipt Date: 20140106
  Transmission Date: 20141002
  Serious: No
  Sender: FDA-Public Use
  Company Number: US-BAYER-2014-002026

PATIENT
  Age: 82 Year
  Sex: Female
  Weight: 75 kg

DRUGS (5)
  1. ALEVE CAPLET [Suspect]
     Indication: SPINAL PAIN
     Dosage: 2 DF, QD WITH FOOD
     Route: 048
     Dates: start: 201311
  2. PROZAC [Concomitant]
  3. XANAX [Concomitant]
  4. CLONAZEPAM [Concomitant]
  5. LISINOPRIL [Concomitant]

REACTIONS (1)
  - Incorrect drug administration duration [None]
